FAERS Safety Report 20692112 (Version 1)
Quarter: 2022Q2

REPORT INFORMATION
  Report Type: Report from Study
  Country: IN (occurrence: IN)
  Receive Date: 20220409
  Receipt Date: 20220409
  Transmission Date: 20220721
  Serious: Yes (Hospitalization, Other)
  Sender: FDA-Public Use
  Company Number: IN-NOVARTISPH-PHHY2018IN146864

PATIENT
  Age: 27 Year
  Sex: Male
  Weight: 48 kg

DRUGS (4)
  1. SIMULECT [Suspect]
     Active Substance: BASILIXIMAB
     Indication: Renal transplant
     Dosage: 20 MG, UNK
     Route: 042
     Dates: start: 20181012, end: 20181016
  2. TACROGRAF [Concomitant]
     Indication: Product used for unknown indication
     Dosage: 0.25 MG (2 STRIPS)
     Route: 065
  3. TACROGRAF [Concomitant]
     Dosage: 0.5 MG (1 BOX)
     Route: 065
  4. TACROGRAF [Concomitant]
     Dosage: 1 MG (1 BOX)
     Route: 065

REACTIONS (4)
  - Kidney transplant rejection [Not Recovered/Not Resolved]
  - Renal cortical necrosis [Unknown]
  - Thrombotic microangiopathy [Unknown]
  - Oedematous kidney [Unknown]

NARRATIVE: CASE EVENT DATE: 20181016
